FAERS Safety Report 8916395 (Version 2)
Quarter: 2012Q4

REPORT INFORMATION
  Report Type: 
  Country: FR (occurrence: FR)
  Receive Date: 20121120
  Receipt Date: 20121221
  Transmission Date: 20130627
  Serious: Yes (Death)
  Sender: FDA-Public Use
  Company Number: FR-B.I. PHARMACEUTICALS,INC./RIDGEFIELD-2012-FF-01567FF

PATIENT
  Age: 89 Year
  Sex: Male
  Weight: 78 kg

DRUGS (3)
  1. PRADAXA [Suspect]
     Indication: DEEP VEIN THROMBOSIS
     Dosage: 220 mg
     Route: 048
  2. SOTALOL [Concomitant]
     Dosage: 80 mg
     Route: 048
  3. SPIRONOLACTONE [Concomitant]
     Route: 048

REACTIONS (1)
  - Cerebral haematoma [Fatal]
